FAERS Safety Report 5893717-3 (Version None)
Quarter: 2008Q3

REPORT INFORMATION
  Report Type: 
  Country: None (occurrence: None)
  Receive Date: 20080918
  Receipt Date: 20080903
  Transmission Date: 20090109
  Serious: Yes (Death)
  Sender: FDA-Public Use
  Company Number: 2008S1016463

PATIENT
  Sex: Male

DRUGS (9)
  1. DICLOFENAC SODIUM [Suspect]
     Indication: DRUG USE FOR UNKNOWN INDICATION
  2. CIPRAMIL (CITALOPRAM) [Suspect]
     Indication: DRUG USE FOR UNKNOWN INDICATION
  3. CORDAREX (AMIODARONE) [Suspect]
     Indication: DRUG USE FOR UNKNOWN INDICATION
  4. DOXYCYCLINE [Suspect]
     Indication: DRUG USE FOR UNKNOWN INDICATION
  5. RISPERDAL [Suspect]
     Indication: DRUG USE FOR UNKNOWN INDICATION
  6. TORSEMIDE [Suspect]
     Indication: DRUG USE FOR UNKNOWN INDICATION
  7. VIANI (SERETIDE /01420901/) [Suspect]
     Indication: DRUG USE FOR UNKNOWN INDICATION
  8. THEOPHYLLINE [Suspect]
     Indication: DRUG USE FOR UNKNOWN INDICATION
  9. NEUROCIL /00038602/ (LEVOMEPROMAZINE MALEATE) [Suspect]
     Indication: DRUG USE FOR UNKNOWN INDICATION

REACTIONS (2)
  - LEFT VENTRICULAR FAILURE [None]
  - SMALL INTESTINAL PERFORATION [None]
